FAERS Safety Report 9218391 (Version 4)
Quarter: 2014Q1

REPORT INFORMATION
  Report Type: Report from Study
  Country: DE (occurrence: DE)
  Receive Date: 20130409
  Receipt Date: 20140213
  Transmission Date: 20141002
  Serious: Yes (Hospitalization)
  Sender: FDA-Public Use
  Company Number: DE-009507513-1304DEU002941

PATIENT
  Age: 47 Year
  Sex: Female
  Weight: 70 kg

DRUGS (1)
  1. SYCREST [Suspect]
     Indication: BIPOLAR I DISORDER
     Dosage: 10 MG, QD
     Dates: start: 20120306, end: 20120617

REACTIONS (1)
  - Psychiatric decompensation [Unknown]
